FAERS Safety Report 11246727 (Version 1)
Quarter: 2015Q3

REPORT INFORMATION
  Report Type: Spontaneous
  Country: US (occurrence: None)
  Receive Date: 20150706
  Receipt Date: 20150706
  Transmission Date: 20151125
  Serious: Yes (Other)
  Sender: FDA-Public Use
  Company Number: None

PATIENT
  Age: 4 Year
  Sex: Male
  Weight: 18.6 kg

DRUGS (5)
  1. SYMBACORT 2 PUFFS A DAY [Concomitant]
  2. ZYRTEC [Concomitant]
     Active Substance: CETIRIZINE HYDROCHLORIDE
  3. VENTALIN [Concomitant]
  4. KID^S VITAMIN [Concomitant]
  5. NASONEX [Suspect]
     Active Substance: MOMETASONE FUROATE
     Indication: CHRONIC SINUSITIS
     Dosage: 1 SPRAY
     Route: 055
     Dates: start: 20150518, end: 20150627

REACTIONS (4)
  - Agitation [None]
  - Middle insomnia [None]
  - Initial insomnia [None]
  - Aggression [None]

NARRATIVE: CASE EVENT DATE: 20150627
